FAERS Safety Report 24820219 (Version 4)
Quarter: 2025Q2

REPORT INFORMATION
  Report Type: Spontaneous
  Country: CL (occurrence: CL)
  Receive Date: 20250108
  Receipt Date: 20250502
  Transmission Date: 20250716
  Serious: Yes (Other)
  Sender: SANDOZ
  Company Number: CL-002147023-NVSC2022CL265491

PATIENT
  Age: 40 Year
  Sex: Female

DRUGS (10)
  1. KISQALI [Suspect]
     Active Substance: RIBOCICLIB SUCCINATE
     Indication: Breast cancer stage IV
     Dosage: 600 MG, QD
     Route: 048
  2. KISQALI [Suspect]
     Active Substance: RIBOCICLIB SUCCINATE
     Dosage: 600 MG, QD, 3 TABLETS
     Route: 048
  3. KISQALI [Suspect]
     Active Substance: RIBOCICLIB SUCCINATE
     Indication: Breast cancer
     Dosage: 600 MG, QD
     Route: 048
  4. KISQALI [Suspect]
     Active Substance: RIBOCICLIB SUCCINATE
     Indication: Malignant nipple neoplasm
     Dosage: 600 MG, QD
     Route: 048
     Dates: start: 20221116
  5. KISQALI [Suspect]
     Active Substance: RIBOCICLIB SUCCINATE
     Dosage: 600 MG, QD
     Route: 048
  6. KISQALI [Suspect]
     Active Substance: RIBOCICLIB SUCCINATE
     Route: 048
     Dates: start: 20240530
  7. KISQALI [Suspect]
     Active Substance: RIBOCICLIB SUCCINATE
     Dosage: 600 MG, QD
     Route: 048
  8. KISQALI [Suspect]
     Active Substance: RIBOCICLIB SUCCINATE
     Dosage: 600 MG, QD
     Route: 048
  9. LETROZOLE [Suspect]
     Active Substance: LETROZOLE
     Indication: Product used for unknown indication
     Route: 065
     Dates: start: 20221116
  10. ZOMETA [Suspect]
     Active Substance: ZOLEDRONIC ACID
     Indication: Product used for unknown indication
     Route: 065

REACTIONS (24)
  - Metastases to bone [Unknown]
  - Leukopenia [Unknown]
  - Dysphonia [Recovering/Resolving]
  - Claustrophobia [Unknown]
  - Nodule [Recovered/Resolved]
  - Drug intolerance [Unknown]
  - Throat clearing [Recovered/Resolved]
  - Decreased immune responsiveness [Unknown]
  - Nasopharyngitis [Unknown]
  - Laboratory test abnormal [Unknown]
  - Hepatic lesion [Unknown]
  - Breast mass [Unknown]
  - Oropharyngeal discomfort [Unknown]
  - Dermatitis allergic [Unknown]
  - Diarrhoea [Unknown]
  - Fatigue [Unknown]
  - Bone pain [Unknown]
  - Back pain [Unknown]
  - Memory impairment [Unknown]
  - Cough [Unknown]
  - Pyrexia [Unknown]
  - Abdominal pain upper [Unknown]
  - Palpitations [Unknown]
  - Expired product administered [Unknown]
